FAERS Safety Report 18646049 (Version 2)
Quarter: 2021Q1

REPORT INFORMATION
  Report Type: Spontaneous
  Country: US (occurrence: US)
  Receive Date: 20201221
  Receipt Date: 20210202
  Transmission Date: 20210419
  Serious: No
  Sender: FDA-Public Use
  Company Number: US-ELI_LILLY_AND_COMPANY-US202012001942

PATIENT
  Age: 62 Year
  Sex: Male

DRUGS (1)
  1. BAMLANIVIMAB 700MG [Suspect]
     Active Substance: BAMLANIVIMAB
     Indication: COVID-19
     Dosage: 700 MG, SINGLE
     Route: 042
     Dates: start: 20201130

REACTIONS (4)
  - Feeling abnormal [Unknown]
  - Fatigue [Recovered/Resolved]
  - Dehydration [Unknown]
  - Limb discomfort [Unknown]

NARRATIVE: CASE EVENT DATE: 20201130
